FAERS Safety Report 5685362-X (Version None)
Quarter: 2008Q1

REPORT INFORMATION
  Report Type: 
  Country: None (occurrence: None)
  Receive Date: 20080328
  Receipt Date: 20080318
  Transmission Date: 20080703
  Serious: Yes (Other)
  Sender: FDA-Public Use
  Company Number: DE-PFIZER INC-2008025305

PATIENT
  Sex: Male

DRUGS (4)
  1. LYRICA [Suspect]
     Route: 048
  2. TRICYCLIC ANTIDEPRESSANTS [Concomitant]
  3. BUPROPION HCL [Concomitant]
  4. ALL OTHER THERAPEUTIC PRODUCTS [Concomitant]

REACTIONS (1)
  - GAMMA-GLUTAMYLTRANSFERASE INCREASED [None]
